FAERS Safety Report 21985195 (Version 8)
Quarter: 2023Q4

REPORT INFORMATION
  Report Type: Report from Study
  Country: ES (occurrence: ES)
  Receive Date: 20230213
  Receipt Date: 20231226
  Transmission Date: 20240110
  Serious: Yes (Hospitalization, Other)
  Sender: FDA-Public Use
  Company Number: ES-TAKEDA-2023TUS014291

PATIENT
  Age: 4 Year
  Sex: Male

DRUGS (24)
  1. TEDUGLUTIDE [Suspect]
     Active Substance: TEDUGLUTIDE
     Indication: Short-bowel syndrome
     Dosage: 0.32 MILLIGRAM, QD
     Route: 042
     Dates: start: 20200513, end: 20210717
  2. TEDUGLUTIDE [Suspect]
     Active Substance: TEDUGLUTIDE
     Indication: Short-bowel syndrome
     Dosage: 0.32 MILLIGRAM, QD
     Route: 042
     Dates: start: 20200513, end: 20210717
  3. TEDUGLUTIDE [Suspect]
     Active Substance: TEDUGLUTIDE
     Indication: Short-bowel syndrome
     Dosage: 0.32 MILLIGRAM, QD
     Route: 042
     Dates: start: 20200513, end: 20210717
  4. TEDUGLUTIDE [Suspect]
     Active Substance: TEDUGLUTIDE
     Indication: Short-bowel syndrome
     Dosage: 0.32 MILLIGRAM, QD
     Route: 042
     Dates: start: 20200513, end: 20210717
  5. TEDUGLUTIDE [Suspect]
     Active Substance: TEDUGLUTIDE
     Dosage: 0.32 MILLIGRAM, QD
     Route: 042
     Dates: start: 20210721, end: 20230219
  6. TEDUGLUTIDE [Suspect]
     Active Substance: TEDUGLUTIDE
     Dosage: 0.32 MILLIGRAM, QD
     Route: 042
     Dates: start: 20210721, end: 20230219
  7. TEDUGLUTIDE [Suspect]
     Active Substance: TEDUGLUTIDE
     Dosage: 0.32 MILLIGRAM, QD
     Route: 042
     Dates: start: 20210721, end: 20230219
  8. TEDUGLUTIDE [Suspect]
     Active Substance: TEDUGLUTIDE
     Dosage: 0.32 MILLIGRAM, QD
     Route: 042
     Dates: start: 20210721, end: 20230219
  9. HIBOR [Concomitant]
     Indication: Thrombosis prophylaxis
     Dosage: 1525 INTERNATIONAL UNIT, QD
     Route: 030
     Dates: start: 20211111, end: 20220221
  10. VITAMIN D [Concomitant]
     Active Substance: VITAMIN D NOS
     Indication: Vitamin D deficiency
     Dosage: 400 INTERNATIONAL UNIT, QD
     Route: 048
     Dates: start: 20211111, end: 20220808
  11. VITAMIN D [Concomitant]
     Active Substance: VITAMIN D NOS
     Indication: Vitamin D deficiency
     Dosage: 1000.00 INTERNATIONAL UNIT, QD
     Route: 048
     Dates: start: 20231127
  12. SODIUM BICARBONATE [Concomitant]
     Active Substance: SODIUM BICARBONATE
     Indication: Acidosis
     Dosage: 1000 MILLIGRAM, TID
     Route: 048
     Dates: start: 20220221
  13. SODIUM BICARBONATE [Concomitant]
     Active Substance: SODIUM BICARBONATE
     Indication: Multivisceral transplantation
     Dosage: UNK, TID
     Route: 065
     Dates: start: 20230807
  14. MICONAZOLE NITRATE [Concomitant]
     Active Substance: MICONAZOLE NITRATE
     Indication: Anorectal discomfort
     Dosage: UNK UNK, BID
     Route: 061
     Dates: start: 20220511, end: 20220521
  15. RITUXIMAB [Concomitant]
     Active Substance: RITUXIMAB
     Indication: Anti-HLA antibody test positive
     Dosage: UNK
     Route: 042
     Dates: start: 20230324, end: 20230331
  16. RITUXIMAB [Concomitant]
     Active Substance: RITUXIMAB
     Dosage: UNK
     Route: 042
     Dates: start: 20230327
  17. HEPARIN [Concomitant]
     Active Substance: HEPARIN SODIUM
     Indication: Thrombosis
     Dosage: UNK
     Route: 042
     Dates: start: 20230220, end: 20230304
  18. AMPHOTERICIN B [Concomitant]
     Active Substance: AMPHOTERICIN B
     Indication: Trichosporon infection
     Dosage: UNK
     Route: 042
     Dates: start: 20230228, end: 20230317
  19. MELATONIN [Concomitant]
     Active Substance: MELATONIN
     Indication: Insomnia
     Dosage: 4 GTT DROPS, QD
     Route: 048
     Dates: start: 20230807
  20. Trimetoprima sulfametoxazol [Concomitant]
     Indication: Multivisceral transplantation
     Dosage: 5 MILLILITER, BID
     Route: 048
     Dates: start: 20230723
  21. Salvacolina [Concomitant]
     Indication: Multivisceral transplantation
     Dosage: 1 MILLIGRAM, TID
     Route: 048
     Dates: start: 20230723
  22. RAPAMYCIN [Concomitant]
     Active Substance: SIROLIMUS
     Indication: Multivisceral transplantation
     Dosage: 1.30 MILLIGRAM, QD
     Route: 048
     Dates: start: 20231127
  23. PREDNISOLONE [Concomitant]
     Active Substance: PREDNISOLONE
     Indication: Multivisceral transplantation
     Dosage: 4.50 MILLIGRAM, QD
     Route: 048
     Dates: start: 20231127
  24. URSODIOL [Concomitant]
     Active Substance: URSODIOL
     Indication: Hypertransaminasaemia
     Dosage: 100.00 MILLIGRAM, TID
     Route: 048
     Dates: start: 20231127

REACTIONS (6)
  - Graft versus host disease in skin [Not Recovered/Not Resolved]
  - Anti-HLA antibody test positive [Recovered/Resolved]
  - Atrial thrombosis [Recovered/Resolved]
  - Peritonitis [Recovered/Resolved]
  - Growth retardation [Recovered/Resolved]
  - Short-bowel syndrome [Recovered/Resolved]

NARRATIVE: CASE EVENT DATE: 20230118
